FAERS Safety Report 4939159-6 (Version None)
Quarter: 2006Q1

REPORT INFORMATION
  Report Type: 
  Country: None (occurrence: None)
  Receive Date: 20060309
  Receipt Date: 20060309
  Transmission Date: 20060701
  Serious: No
  Sender: FDA-Public Use
  Company Number: None

PATIENT
  Age: 54 Year
  Sex: Female
  Weight: 70.7611 kg

DRUGS (1)
  1. LEVAQUIN [Suspect]
     Dosage: 500 MG ONCE DAILY IV DRIP
     Route: 042
     Dates: start: 20010206, end: 20010207

REACTIONS (6)
  - DRUG HYPERSENSITIVITY [None]
  - ERYTHEMA [None]
  - HEADACHE [None]
  - INFUSION RELATED REACTION [None]
  - MALAISE [None]
  - NAUSEA [None]
